FAERS Safety Report 25228846 (Version 1)
Quarter: 2025Q2

REPORT INFORMATION
  Report Type: Report from Study
  Country: US (occurrence: US)
  Receive Date: 20250423
  Receipt Date: 20250423
  Transmission Date: 20250717
  Serious: Yes (Hospitalization, Other)
  Sender: RANBAXY
  Company Number: US-SUN PHARMACEUTICAL INDUSTRIES LTD-2025R1-504780

PATIENT
  Sex: Male
  Weight: 3.48 kg

DRUGS (1)
  1. PHENOBARBITAL [Suspect]
     Active Substance: PHENOBARBITAL
     Indication: Seizure
     Route: 065

REACTIONS (3)
  - Intraventricular haemorrhage [Unknown]
  - Perinatal stroke [Unknown]
  - Cerebral venous sinus thrombosis [Unknown]
